FAERS Safety Report 15795733 (Version 4)
Quarter: 2022Q1

REPORT INFORMATION
  Report Type: Spontaneous
  Country: FR (occurrence: FR)
  Receive Date: 20190107
  Receipt Date: 20220118
  Transmission Date: 20220423
  Serious: Yes (Hospitalization, Other)
  Sender: FDA-Public Use
  Company Number: None

PATIENT
  Age: 15 Year
  Sex: Male
  Weight: 110 kg

DRUGS (6)
  1. RISPERIDONE [Suspect]
     Active Substance: RISPERIDONE
     Indication: Poisoning deliberate
     Dosage: 40 MILLIGRAM, QD ONCE TOTAL
     Route: 048
     Dates: start: 20180606, end: 20180606
  2. DESLORATADINE [Suspect]
     Active Substance: DESLORATADINE
     Indication: Poisoning deliberate
     Dosage: 75 MILLIGRAM, TOTAL,QD (ONCE) TOTAL
     Route: 048
     Dates: start: 20180606, end: 20180606
  3. LANSOPRAZOLE [Suspect]
     Active Substance: LANSOPRAZOLE
     Indication: Poisoning deliberate
     Dosage: 105 MILLIGRAM, TOTAL
     Route: 048
     Dates: start: 20180606, end: 20180606
  4. PRISTINAMYCIN [Suspect]
     Active Substance: PRISTINAMYCIN
     Indication: Poisoning deliberate
     Dosage: 4000 MILLIGRAM, QD (ONCE) TOTAL
     Route: 048
     Dates: start: 20180606, end: 20180606
  5. SERETIDE [Suspect]
     Active Substance: FLUTICASONE PROPIONATE\SALMETEROL XINAFOATE
     Indication: Poisoning deliberate
     Dosage: UNK (NON PR?CIS?E)
     Route: 055
     Dates: start: 20180606, end: 20180606
  6. LANSOPRAZOLE [Suspect]
     Active Substance: LANSOPRAZOLE
     Indication: Product used for unknown indication
     Dosage: 105 MILLIGRAM, TOTAL,ONCE
     Route: 048
     Dates: start: 20180606, end: 20180606

REACTIONS (4)
  - Myoglobin blood increased [Recovered/Resolved]
  - Somnolence [Recovered/Resolved]
  - Blood creatine phosphokinase increased [Recovered/Resolved]
  - Poisoning deliberate [Unknown]

NARRATIVE: CASE EVENT DATE: 20180606
